FAERS Safety Report 9786997 (Version 2)
Quarter: 2014Q2

REPORT INFORMATION
  Report Type: Spontaneous
  Country: US (occurrence: US)
  Receive Date: 20131227
  Receipt Date: 20140414
  Transmission Date: 20141212
  Serious: Yes (Other)
  Sender: FDA-Public Use
  Company Number: CHPA2013US018803

PATIENT
  Age: 75 Year
  Sex: Male

DRUGS (1)
  1. GAS-X UNKNOWN [Suspect]
     Dosage: UNK, UNK

REACTIONS (2)
  - Loss of consciousness [Unknown]
  - Blood glucose decreased [Unknown]
